FAERS Safety Report 8507377-6 (Version None)
Quarter: 2012Q3

REPORT INFORMATION
  Report Type: 
  Country: None (occurrence: None)
  Receive Date: 20120712
  Receipt Date: 20120628
  Transmission Date: 20120928
  Serious: Yes (Other)
  Sender: FDA-Public Use
  Company Number: US-ROCHE-1083091

PATIENT
  Age: 55 Year
  Sex: Male

DRUGS (7)
  1. SPIRIVA [Concomitant]
  2. RITUXAN [Suspect]
     Indication: DIFFUSE LARGE B-CELL LYMPHOMA
  3. PREDNISONE [Concomitant]
  4. ALBUTEROL [Concomitant]
  5. BUDESONIDE [Concomitant]
  6. ADVAIR DISKUS 100/50 [Concomitant]
  7. CYTOXAN [Concomitant]

REACTIONS (4)
  - PULMONARY FUNCTION TEST DECREASED [None]
  - ADVERSE DRUG REACTION [None]
  - LUNG DISORDER [None]
  - OXYGEN SUPPLEMENTATION [None]
